FAERS Safety Report 6564005-7 (Version None)
Quarter: 2010Q1

REPORT INFORMATION
  Report Type: 
  Country: None (occurrence: None)
  Receive Date: 20100131
  Receipt Date: 20100122
  Transmission Date: 20100710
  Serious: Yes (Hospitalization, Other)
  Sender: FDA-Public Use
  Company Number: PT-JNJFOC-20091100166

PATIENT
  Sex: Female

DRUGS (5)
  1. TOPAMAX [Suspect]
     Indication: TREMOR
     Route: 048
  2. LASIX [Concomitant]
  3. GABAPENTIN [Concomitant]
  4. ALLOPURINOL [Concomitant]
  5. VARFINE [Concomitant]

REACTIONS (2)
  - METABOLIC ACIDOSIS [None]
  - OFF LABEL USE [None]
